FAERS Safety Report 10444295 (Version 1)
Quarter: 2014Q3

REPORT INFORMATION
  Report Type: Spontaneous
  Country: IR (occurrence: None)
  Receive Date: 20140908
  Receipt Date: 20140908
  Transmission Date: 20150326
  Serious: Yes (Hospitalization, Other)
  Sender: FDA-Public Use
  Company Number: 2014SCAL000055

PATIENT
  Age: 63 Year
  Sex: Male

DRUGS (1)
  1. DONEPEZIL HYDROCHLORIDE (DONEPEZIL HYDROCHLORIDE) UNKNOWN [Suspect]
     Active Substance: DONEPEZIL HYDROCHLORIDE
     Indication: COGNITIVE DISORDER

REACTIONS (7)
  - Delirium [None]
  - Abnormal behaviour [None]
  - Confusional state [None]
  - Aggression [None]
  - Memory impairment [None]
  - Agitation [None]
  - Irritability [None]
